FAERS Safety Report 7271823-9 (Version None)
Quarter: 2011Q1

REPORT INFORMATION
  Report Type: 
  Country: None (occurrence: None)
  Receive Date: 20110126
  Receipt Date: 20110112
  Transmission Date: 20110831
  Serious: Yes (Hospitalization)
  Sender: FDA-Public Use
  Company Number: MSER20110003

PATIENT
  Age: 62 Year
  Sex: Male

DRUGS (11)
  1. MORPHINE [Suspect]
     Indication: PAIN
     Dosage: 30 MG, CONTINUOUS, SUBCUTANEOUS
     Route: 058
  2. METRONIDAZOLE (METROIDAZOLE) (METRONIDAZOLE) [Concomitant]
  3. METOCLOPRAMID (METOCLOPRAMIDE) (METOCLOPRAMIDE) [Concomitant]
  4. MORPHINE [Suspect]
     Indication: PAIN
     Dosage: SEE IMAGE
     Route: 058
  5. NAPROXEN [Concomitant]
  6. AMITRIPTYLINE (AMITRIPTYLINE) (AMITRIPTYLINE) [Concomitant]
  7. MORPHINE SULFATE [Suspect]
     Indication: PAIN
     Dosage: 120 MG, 2 IN 1 D, ORAL, 270 MG, 3 IN 1 D, ORAL, 360 MG, 3 IN 1 D, ORAL
     Route: 048
  8. CARBAMAZEPINE [Concomitant]
  9. LACTULOSE (LACTULOSE) (LACTULOSE) [Concomitant]
  10. SENNA (SENNA ALEXANDRINA) (SENNA ALEXANDRINA) [Concomitant]
  11. ANALGIN (ACETYLSALICYLIC ACID, CAFFEINE, PARACETAMOL) (ACETYLSALICYLIC [Concomitant]

REACTIONS (7)
  - CONFUSIONAL STATE [None]
  - BONE PAIN [None]
  - ALLODYNIA [None]
  - HYPERAESTHESIA [None]
  - MUSCLE TWITCHING [None]
  - RESTLESSNESS [None]
  - CONSTIPATION [None]
